FAERS Safety Report 5638304-7 (Version None)
Quarter: 2008Q1

REPORT INFORMATION
  Report Type: 
  Country: None (occurrence: None)
  Receive Date: 20080226
  Receipt Date: 20080213
  Transmission Date: 20080703
  Serious: Yes (Other)
  Sender: FDA-Public Use
  Company Number: FR-AMGEN-US256339

PATIENT
  Sex: Female

DRUGS (5)
  1. ENBREL [Suspect]
     Indication: RHEUMATOID ARTHRITIS
     Dosage: 50 MG TOTAL WEEKLY
     Route: 058
     Dates: start: 20051012
  2. IMUREL [Concomitant]
     Indication: RHEUMATOID ARTHRITIS
     Dosage: 100 MG TOTAL DAILY
     Route: 048
     Dates: start: 20051012, end: 20070820
  3. TOPAAL [Concomitant]
     Dosage: 1 TABLET, ON DEMAND
     Route: 065
  4. ACETAMINOPHEN [Concomitant]
     Dosage: 3 G TOTAL DAILY
     Route: 065
  5. OROCAL VITAMIN D [Concomitant]
     Route: 065

REACTIONS (2)
  - CUTANEOUS LUPUS ERYTHEMATOSUS [None]
  - PIGMENTATION DISORDER [None]
